FAERS Safety Report 7228769-1 (Version None)
Quarter: 2011Q1

REPORT INFORMATION
  Report Type: 
  Country: None (occurrence: None)
  Receive Date: 20110117
  Receipt Date: 20110110
  Transmission Date: 20110831
  Serious: No
  Sender: FDA-Public Use
  Company Number: US-BIOGENIDEC-2010BI041847

PATIENT
  Age: 53 Year
  Sex: Female

DRUGS (2)
  1. AVONEX [Suspect]
     Indication: MULTIPLE SCLEROSIS
     Route: 030
     Dates: start: 20060421, end: 20110101
  2. AVONEX [Suspect]
     Route: 030
     Dates: start: 20060101, end: 20060101

REACTIONS (7)
  - PRURITUS [None]
  - SKIN MASS [None]
  - HEADACHE [None]
  - REACTION TO PRESERVATIVES [None]
  - CHILLS [None]
  - BONE PAIN [None]
  - RASH [None]
